FAERS Safety Report 23217141 (Version 1)
Quarter: 2023Q4

REPORT INFORMATION
  Report Type: Spontaneous
  Country: GB (occurrence: GB)
  Receive Date: 20231122
  Receipt Date: 20231122
  Transmission Date: 20240109
  Serious: Yes (Disabling)
  Sender: FDA-Public Use
  Company Number: None

PATIENT
  Age: 61 Year
  Sex: Female
  Weight: 105 kg

DRUGS (1)
  1. ORLISTAT [Suspect]
     Active Substance: ORLISTAT
     Indication: Weight decreased
     Dosage: 3 TIMES DAILY?DAILY DOSE: 360 MILLIGRAM
     Dates: start: 20231113, end: 20231114

REACTIONS (1)
  - Muscle spasms [Recovered/Resolved]

NARRATIVE: CASE EVENT DATE: 20231113
